FAERS Safety Report 17206894 (Version 1)
Quarter: 2019Q4

REPORT INFORMATION
  Report Type: Spontaneous
  Country: JP (occurrence: JP)
  Receive Date: 20191227
  Receipt Date: 20191227
  Transmission Date: 20200122
  Serious: Yes (Other)
  Sender: FDA-Public Use
  Company Number: JP-STRIDES ARCOLAB LIMITED-2019SP013281

PATIENT
  Age: 57 Year
  Sex: Male

DRUGS (6)
  1. CLARITHROMYCIN. [Suspect]
     Active Substance: CLARITHROMYCIN
     Indication: LYMPHADENOPATHY
     Dosage: 800 MILLIGRAM/DAY (COMBINED WITH PSL AND CPM)
     Route: 065
  2. PREDNISOLONE. [Suspect]
     Active Substance: PREDNISOLONE
     Dosage: 30 MILLIGRAM/DAY (COMBINED WITH IV ERYTHROMYCIN)
     Route: 065
  3. CYCLOPHOSPHAMIDE. [Suspect]
     Active Substance: CYCLOPHOSPHAMIDE
     Indication: LYMPHOMA
     Dosage: 50 MILLIGRAM/DAY
     Route: 065
  4. CLARITHROMYCIN. [Suspect]
     Active Substance: CLARITHROMYCIN
     Indication: LYMPHOMA
     Dosage: 800 MILLIGRAM/DAY
     Route: 065
  5. PREDNISOLONE. [Suspect]
     Active Substance: PREDNISOLONE
     Indication: LYMPHOMA
     Dosage: 10 MILLIGRAM PER DAY (COMBINED WITH CPM)
     Route: 065
  6. PREDNISOLONE. [Suspect]
     Active Substance: PREDNISOLONE
     Dosage: 20 MILLIGRAM/DAY (DOSE DECREASED)
     Route: 065

REACTIONS (5)
  - Pancytopenia [Unknown]
  - Exophthalmos [Unknown]
  - Off label use [Unknown]
  - Myelodysplastic syndrome [Unknown]
  - Orbital space occupying lesion [Unknown]
